FAERS Safety Report 17851638 (Version 2)
Quarter: 2020Q3

REPORT INFORMATION
  Report Type: Spontaneous
  Country: JP (occurrence: JP)
  Receive Date: 20200602
  Receipt Date: 20200716
  Transmission Date: 20201103
  Serious: Yes (Hospitalization)
  Sender: FDA-Public Use
  Company Number: JP-JNJFOC-20200415697

PATIENT
  Age: 8 Year
  Sex: Female

DRUGS (5)
  1. REMICADE [Suspect]
     Active Substance: INFLIXIMAB
     Indication: COLITIS ULCERATIVE
     Dosage: 125 MILLIGRAM, QD
     Route: 042
     Dates: start: 20191205, end: 20200115
  2. REMICADE [Suspect]
     Active Substance: INFLIXIMAB
     Dosage: 125 MILLIGRAM, QD
     Route: 041
     Dates: start: 20200311, end: 20200311
  3. PREDNISOLONE. [Concomitant]
     Active Substance: PREDNISOLONE
     Dosage: UNK
     Route: 065
     Dates: end: 20200326
  4. PENTASA [Concomitant]
     Active Substance: MESALAMINE
     Dosage: 1000 MILLIGRAM, BID
     Route: 048
     Dates: start: 20191114, end: 20200417
  5. LEUKERIN [Concomitant]
     Active Substance: MERCAPTOPURINE
     Dosage: 4 MILLIGRAM, QD
     Route: 048
     Dates: start: 20200129

REACTIONS (1)
  - Condition aggravated [Unknown]

NARRATIVE: CASE EVENT DATE: 20200330
